FAERS Safety Report 5750642-6 (Version None)
Quarter: 2008Q2

REPORT INFORMATION
  Report Type: 
  Country: None (occurrence: None)
  Receive Date: 20080528
  Receipt Date: 20080512
  Transmission Date: 20081010
  Serious: No
  Sender: FDA-Public Use
  Company Number: US-ABBOTT-08P-163-0451461-00

PATIENT
  Sex: Female
  Weight: 43.584 kg

DRUGS (1)
  1. NIACIN ER/SIMVASTATIN [Suspect]
     Indication: BLOOD CHOLESTEROL INCREASED
     Dosage: 500/20 MG AT HS
     Route: 048
     Dates: start: 20080501

REACTIONS (1)
  - FLUSHING [None]
